FAERS Safety Report 7977728-X (Version None)
Quarter: 2011Q4

REPORT INFORMATION
  Report Type: 
  Country: None (occurrence: None)
  Receive Date: 20111214
  Receipt Date: 20111128
  Transmission Date: 20120403
  Serious: No
  Sender: FDA-Public Use
  Company Number: US-AMGEN-USASP2011056758

PATIENT
  Age: 51 Year
  Sex: Female
  Weight: 88.889 kg

DRUGS (5)
  1. FOLIC ACID [Concomitant]
     Dosage: 1 MG, UNK
  2. ENBREL [Suspect]
     Indication: RHEUMATOID ARTHRITIS
     Dosage: 50 MG, QWK
     Route: 058
     Dates: start: 20110815
  3. PREDNISONE TAB [Concomitant]
     Dosage: 1 MG, UNK
  4. METHOTREXATE [Concomitant]
     Dosage: 8 MG, UNK
  5. DICLOFENAC SODIUM [Concomitant]
     Dosage: 2 MG, UNK

REACTIONS (1)
  - RHEUMATOID ARTHRITIS [None]
